FAERS Safety Report 10160295 (Version 1)
Quarter: 2014Q2

REPORT INFORMATION
  Report Type: Spontaneous
  Country: US (occurrence: None)
  Receive Date: 20140507
  Receipt Date: 20140507
  Transmission Date: 20141212
  Serious: Yes (Other)
  Sender: FDA-Public Use
  Company Number: None

PATIENT
  Age: 70 Year
  Sex: Female
  Weight: 90.72 kg

DRUGS (3)
  1. CELEBREX [Suspect]
     Indication: ARTHRITIS
     Dosage: 1 PILL ONCE BY MOUTH
     Route: 048
     Dates: start: 2012, end: 2014
  2. CELEBREX [Suspect]
     Indication: PAIN
     Dosage: 1 PILL ONCE BY MOUTH
     Route: 048
     Dates: start: 2012, end: 2014
  3. VITAMINS [Concomitant]

REACTIONS (1)
  - Haemorrhage [None]
